FAERS Safety Report 5040890-5 (Version None)
Quarter: 2006Q2

REPORT INFORMATION
  Report Type: 
  Country: None (occurrence: None)
  Receive Date: 20060630
  Receipt Date: 20060630
  Transmission Date: 20061013
  Serious: Yes (Other)
  Sender: FDA-Public Use
  Company Number: None

PATIENT
  Sex: Male
  Weight: 153.5 kg

DRUGS (3)
  1. CARBOPLATIN [Suspect]
     Indication: NEOPLASM MALIGNANT
     Dosage: 1.5 AUC WEEKLY X 6 IV DRIP
     Route: 041
     Dates: start: 20050625, end: 20050803
  2. CAPECITABINE 500 MG /150 MG ROCHE [Suspect]
     Dosage: 800 MG BIDX 14 DAYS X 2 PO
     Route: 048
     Dates: start: 20050629, end: 20050801
  3. INTENSITY MODULATED RADIATION TREATMENT [Concomitant]

REACTIONS (7)
  - BONE DISORDER [None]
  - BONE PAIN [None]
  - JAW DISORDER [None]
  - PAIN IN JAW [None]
  - PRIMARY SEQUESTRUM [None]
  - TENDERNESS [None]
  - TREATMENT NONCOMPLIANCE [None]
